FAERS Safety Report 17729910 (Version 2)
Quarter: 2021Q4

REPORT INFORMATION
  Report Type: Spontaneous
  Country: US (occurrence: US)
  Receive Date: 20200430
  Receipt Date: 20211130
  Transmission Date: 20220304
  Serious: No
  Sender: FDA-Public Use
  Company Number: CID000000000004211

PATIENT
  Sex: Female

DRUGS (1)
  1. FAMCICLOVIR [Suspect]
     Active Substance: FAMCICLOVIR
     Route: 065

REACTIONS (1)
  - Gluten sensitivity [Not Recovered/Not Resolved]
